FAERS Safety Report 10244083 (Version 1)
Quarter: 2014Q2

REPORT INFORMATION
  Report Type: Spontaneous
  Country: BE (occurrence: BE)
  Receive Date: 20140618
  Receipt Date: 20140618
  Transmission Date: 20141212
  Serious: Yes (Other)
  Sender: FDA-Public Use
  Company Number: BE-PFIZER INC-2014160578

PATIENT
  Age: 77 Year
  Sex: Female

DRUGS (7)
  1. LIPITOR [Suspect]
     Indication: HYPERCHOLESTEROLAEMIA
     Dosage: 20 MG, 1X/DAY
     Route: 048
     Dates: start: 2013
  2. SERTRALINE EG [Interacting]
     Dosage: 50 MG, 1X/DAY
     Route: 048
  3. DEANXIT [Interacting]
     Dosage: 0.5 MG / 10 MG, 1X/DAY
     Route: 048
  4. TOBRADEX [Interacting]
     Dosage: 1 GTT, 1X/DAY
     Route: 047
     Dates: start: 201404
  5. ALDACTAZINE [Concomitant]
     Indication: HYPERTENSION
     Dosage: 15 MG / 25 MG, 1X/DAY
     Route: 048
     Dates: start: 2013
  6. DILTIAZEM EG [Interacting]
     Indication: HYPERTENSION
     Dosage: 300 MG, 1X/DAY
     Route: 048
  7. DICLOABAK [Concomitant]
     Dosage: UNK

REACTIONS (14)
  - Glaucoma [Unknown]
  - Vitreous haemorrhage [Recovered/Resolved]
  - Activities of daily living impaired [Unknown]
  - Drug interaction [Unknown]
  - Nasopharyngitis [Recovered/Resolved]
  - Phlebitis superficial [Unknown]
  - Asthenia [Unknown]
  - Abdominal discomfort [Unknown]
  - Nausea [Unknown]
  - Somnolence [Unknown]
  - Feeling abnormal [Unknown]
  - Dyspnoea exertional [Unknown]
  - Fatigue [Unknown]
  - Anger [None]
